FAERS Safety Report 4837867-9 (Version None)
Quarter: 2005Q4

REPORT INFORMATION
  Report Type: 
  Country: None (occurrence: None)
  Receive Date: 20051128
  Receipt Date: 20051004
  Transmission Date: 20060501
  Serious: Yes (Hospitalization, Disabling, Other)
  Sender: FDA-Public Use
  Company Number: US-MERCK-0510USA03110

PATIENT
  Age: 44 Year
  Sex: Male
  Weight: 100 kg

DRUGS (11)
  1. VIOXX [Suspect]
     Indication: ARTHRITIS
     Route: 048
     Dates: start: 20001016, end: 20010917
  2. VIOXX [Suspect]
     Route: 048
     Dates: start: 20001016, end: 20010917
  3. NEURONTIN [Concomitant]
     Route: 065
  4. CELEBREX [Concomitant]
     Route: 065
  5. HYDROCODONE BITARTRATE [Concomitant]
     Route: 065
  6. ACETAMINOPHEN [Concomitant]
     Route: 065
  7. ORPHENADRINE [Concomitant]
     Route: 065
  8. ZYDONE [Concomitant]
     Route: 065
  9. VICOPROFEN [Concomitant]
     Route: 065
  10. NITROQUICK [Concomitant]
     Route: 065
  11. ASPIRIN [Concomitant]
     Route: 065

REACTIONS (14)
  - ACUTE MYOCARDIAL INFARCTION [None]
  - ANGINA UNSTABLE [None]
  - BLINDNESS [None]
  - CARDIOMEGALY [None]
  - CHEST PAIN [None]
  - CORONARY ARTERY DISEASE [None]
  - CORONARY ARTERY OCCLUSION [None]
  - CORONARY ARTERY STENOSIS [None]
  - DEPRESSION [None]
  - EJECTION FRACTION DECREASED [None]
  - HYPERCHOLESTEROLAEMIA [None]
  - HYPERTENSION [None]
  - MYOCARDIAL INFARCTION [None]
  - VENTRICULAR EXTRASYSTOLES [None]
